FAERS Safety Report 20975967 (Version 1)
Quarter: 2022Q2

REPORT INFORMATION
  Report Type: Spontaneous
  Country: US (occurrence: US)
  Receive Date: 20220617
  Receipt Date: 20220617
  Transmission Date: 20220720
  Serious: Yes (Death)
  Sender: FDA-Public Use
  Company Number: US-CHIESI-2022CHF02999

PATIENT
  Sex: Male
  Weight: 58 kg

DRUGS (2)
  1. FERRIPROX [Suspect]
     Active Substance: DEFERIPRONE
     Indication: Blood test abnormal
     Dosage: 2500 MILLIGRAM
     Route: 048
     Dates: start: 20211228
  2. FERRIPROX [Suspect]
     Active Substance: DEFERIPRONE
     Indication: Off label use

REACTIONS (2)
  - Death [Fatal]
  - Off label use [Recovered/Resolved]
